FAERS Safety Report 12438951 (Version 1)
Quarter: 2016Q2

REPORT INFORMATION
  Report Type: Spontaneous
  Country: IT (occurrence: IT)
  Receive Date: 20160606
  Receipt Date: 20160606
  Transmission Date: 20160815
  Serious: Yes (Death, Hospitalization)
  Sender: FDA-Public Use
  Company Number: IT-TEVA-663130ACC

PATIENT
  Age: 57 Year
  Sex: Male
  Weight: 73 kg

DRUGS (4)
  1. RIBAVIRIN. [Suspect]
     Active Substance: RIBAVIRIN
     Indication: HEPATITIS C
     Dosage: 400 MILLIGRAM DAILY;
     Route: 048
     Dates: start: 20160405, end: 20160502
  2. PREZISTA - 400 MG - COMPRESSE RIVESTITE [Concomitant]
     Indication: HIV INFECTION
     Dosage: 800 MG
     Route: 048
     Dates: start: 20130430, end: 20160502
  3. TRUVADA - COMPRESSE RIVESTITE CON FILM - 200 MG/245 MG [Concomitant]
     Indication: HIV INFECTION
     Dosage: 1 DF
     Route: 048
     Dates: start: 20130430, end: 20160502
  4. HARVONI [Suspect]
     Active Substance: LEDIPASVIR\SOFOSBUVIR
     Indication: HEPATITIS C
     Dosage: 1 DOSAGE FORMS DAILY;
     Route: 048
     Dates: start: 20160405, end: 20160502

REACTIONS (1)
  - Hepatic cirrhosis [Fatal]

NARRATIVE: CASE EVENT DATE: 20160415
